FAERS Safety Report 5351962-X (Version None)
Quarter: 2007Q2

REPORT INFORMATION
  Report Type: 
  Country: None (occurrence: None)
  Receive Date: 20070611
  Receipt Date: 20070531
  Transmission Date: 20071010
  Serious: Yes (Other)
  Sender: FDA-Public Use
  Company Number: IN-SP-2007-02012

PATIENT
  Age: 54 Year
  Sex: Male

DRUGS (1)
  1. BCG  THERAPEUTICS [Suspect]
     Indication: BLADDER TRANSITIONAL CELL CARCINOMA RECURRENT
     Dosage: 120 MG WEEKLY THEN MONTHLY
     Route: 043

REACTIONS (4)
  - HYPERTENSION [None]
  - NEPHROTIC SYNDROME [None]
  - OEDEMA PERIPHERAL [None]
  - SWELLING FACE [None]
